FAERS Safety Report 8235585-0 (Version None)
Quarter: 2012Q1

REPORT INFORMATION
  Report Type: 
  Country: None (occurrence: None)
  Receive Date: 20120322
  Receipt Date: 20120312
  Transmission Date: 20120608
  Serious: Yes (Hospitalization, Other)
  Sender: FDA-Public Use
  Company Number: 2012MA003336

PATIENT
  Age: 51 Year
  Sex: Male

DRUGS (2)
  1. COLD MEDICATION [Concomitant]
  2. CARBAMAZEPINE [Suspect]
     Indication: TRIGEMINAL NEURALGIA
     Dosage: 200 MG; QD; PO
     Route: 048

REACTIONS (7)
  - LYMPHADENOPATHY [None]
  - FACE OEDEMA [None]
  - DRUG RASH WITH EOSINOPHILIA AND SYSTEMIC SYMPTOMS [None]
  - PYREXIA [None]
  - FATIGUE [None]
  - NASOPHARYNGITIS [None]
  - ARTHRALGIA [None]
